FAERS Safety Report 18103897 (Version 1)
Quarter: 2020Q3

REPORT INFORMATION
  Report Type: Spontaneous
  Country: US (occurrence: US)
  Receive Date: 20200731
  Receipt Date: 20200731
  Transmission Date: 20201103
  Serious: Yes (Death)
  Sender: FDA-Public Use
  Company Number: None

PATIENT
  Age: 15 Year
  Sex: Female
  Weight: 43.7 kg

DRUGS (1)
  1. REMDESIVIR 100MG [Suspect]
     Active Substance: REMDESIVIR
     Indication: COVID-19
     Dosage: FREQUENCY: ONCE
     Route: 042
     Dates: start: 20200711, end: 20200711

REACTIONS (11)
  - Disease progression [None]
  - Pyrexia [None]
  - Blood creatinine increased [None]
  - Acute respiratory distress syndrome [None]
  - Pulseless electrical activity [None]
  - Respiratory failure [None]
  - Hypercapnia [None]
  - Cardiac arrest [None]
  - Blood urea increased [None]
  - Oxygen saturation decreased [None]
  - Urine output decreased [None]

NARRATIVE: CASE EVENT DATE: 20200726
